FAERS Safety Report 9485400 (Version 3)
Quarter: 2013Q4

REPORT INFORMATION
  Report Type: Spontaneous
  Country: US (occurrence: US)
  Receive Date: 20130829
  Receipt Date: 20131004
  Transmission Date: 20140711
  Serious: Yes (Disabling, Other)
  Sender: FDA-Public Use
  Company Number: US-PFIZER INC-2011127750

PATIENT
  Age: 53 Year
  Sex: Female
  Weight: 63 kg

DRUGS (10)
  1. PRISTIQ [Suspect]
     Indication: DEPRESSION
     Dosage: 100 MG, 1X/DAY
     Dates: start: 2009
  2. IBUPROFEN [Concomitant]
     Indication: HEADACHE
     Dosage: UNK, AS NEEDED
  3. IBUPROFEN [Concomitant]
     Indication: PAIN
  4. IBUPROFEN [Concomitant]
     Indication: INTERVERTEBRAL DISC PROTRUSION
  5. NORCO [Concomitant]
     Indication: HEADACHE
     Dosage: 10 MG, 3X/DAY
  6. NORCO [Concomitant]
     Indication: PAIN
  7. NORCO [Concomitant]
     Indication: INTERVERTEBRAL DISC PROTRUSION
  8. FIORICET [Concomitant]
     Indication: HEADACHE
     Dosage: UNK, 3X/DAY
  9. FIORICET [Concomitant]
     Indication: PAIN
  10. FIORICET [Concomitant]
     Indication: INTERVERTEBRAL DISC PROTRUSION

REACTIONS (3)
  - Brain neoplasm [Unknown]
  - Drug ineffective [Unknown]
  - Depressed mood [Unknown]
